FAERS Safety Report 5260295-1 (Version None)
Quarter: 2007Q1

REPORT INFORMATION
  Report Type: 
  Country: None (occurrence: None)
  Receive Date: 20070309
  Receipt Date: 20060627
  Transmission Date: 20070707
  Serious: No
  Sender: FDA-Public Use
  Company Number: US-GLAXOSMITHKLINE-A0610307A

PATIENT
  Age: 41 Year

DRUGS (2)
  1. NICORETTE [Suspect]
     Dates: start: 20060619
  2. NICORETTE (MINT) [Suspect]
     Dates: start: 20060622

REACTIONS (1)
  - DYSGEUSIA [None]
